FAERS Safety Report 14479809 (Version 1)
Quarter: 2018Q1

REPORT INFORMATION
  Report Type: Spontaneous
  Country: NZ (occurrence: NZ)
  Receive Date: 20180202
  Receipt Date: 20180202
  Transmission Date: 20180509
  Serious: Yes (Hospitalization, Other)
  Sender: FDA-Public Use
  Company Number: NZ-BAXTER-2018BAX003250

PATIENT
  Age: 32 Year
  Sex: Female

DRUGS (36)
  1. GLUCOSE 70% [Suspect]
     Active Substance: DEXTROSE
     Indication: SMALL INTESTINAL OBSTRUCTION
     Dosage: TPN WITH LIPID, VOLUME OF TPN 2400 ML/DAY VIA PORT-A-CATH
     Route: 042
     Dates: start: 201712, end: 201801
  2. WATER FOR INJECTION [Suspect]
     Active Substance: WATER
     Indication: HYPOPHAGIA
     Dosage: TPN WITHOUT LIPID, VOLUME OF TPN 2400 ML/DAY VIA PORT-A-CATH
     Route: 042
     Dates: start: 201712, end: 201801
  3. SODIUM CHLORIDE 4MMOL/ML [Suspect]
     Active Substance: SODIUM CHLORIDE
     Indication: DISEASE RECURRENCE
  4. CALCIUM GLUCONATE 0.15MMOL/ML [Suspect]
     Active Substance: CALCIUM GLUCONATE
     Indication: SMALL INTESTINAL OBSTRUCTION
     Dosage: TPN WITH LIPID, VOLUME OF TPN 2400 ML/DAY VIA PORT-A-CATH
     Route: 042
     Dates: start: 201712, end: 201801
  5. WATER FOR RECONSTITUTION [Suspect]
     Active Substance: WATER
     Indication: HYPOPHAGIA
     Dosage: TPN WITHOUT LIPID, VOLUME OF TPN 2400 ML/DAY VIA PORT-A-CATH
     Route: 042
     Dates: start: 201712, end: 201801
  6. SYNTHAMIN [Suspect]
     Active Substance: AMINO ACIDS
     Indication: HYPOPHAGIA
     Dosage: TPN WITHOUT LIPID, VOLUME OF TPN 2400 ML/DAY VIA PORT-A-CATH
     Route: 042
     Dates: start: 201712, end: 201801
  7. CERNEVIT [Suspect]
     Active Substance: VITAMINS
     Indication: SMALL INTESTINAL OBSTRUCTION
     Dosage: TPN WITH LIPID, VOLUME OF TPN 2400 ML/DAY VIA PORT-A-CATH
     Route: 042
     Dates: start: 201712, end: 201801
  8. SODIUM CHLORIDE 4MMOL/ML [Suspect]
     Active Substance: SODIUM CHLORIDE
     Indication: SMALL INTESTINAL OBSTRUCTION
     Dosage: TPN WITH LIPID, VOLUME OF TPN 2400 ML/DAY VIA PORT-A-CATH
     Route: 042
     Dates: start: 201712, end: 201801
  9. CERNEVIT [Suspect]
     Active Substance: VITAMINS
     Indication: HYPOPHAGIA
     Dosage: TPN WITHOUT LIPID, VOLUME OF TPN 2400 ML/DAY VIA PORT-A-CATH
     Route: 042
     Dates: start: 201712, end: 201801
  10. WATER FOR RECONSTITUTION [Suspect]
     Active Substance: WATER
     Indication: SMALL INTESTINAL OBSTRUCTION
     Dosage: TPN WITH LIPID, VOLUME OF TPN 2400 ML/DAY VIA PORT-A-CATH
     Route: 042
     Dates: start: 201712, end: 201801
  11. SMOFLIPID [Suspect]
     Active Substance: FISH OIL\MEDIUM-CHAIN TRIGLYCERIDES\OLIVE OIL\SOYBEAN OIL
     Indication: SMALL INTESTINAL OBSTRUCTION
     Dosage: TPN WITH LIPID, VOLUME OF TPN 2400 ML/DAY VIA PORT-A-CATH
     Route: 042
     Dates: start: 201712, end: 201801
  12. GLUCOSE 70% [Suspect]
     Active Substance: DEXTROSE
     Indication: HYPOPHAGIA
     Dosage: TPN WITHOUT LIPID, VOLUME OF TPN 2400 ML/DAY VIA PORT-A-CATH
     Route: 042
     Dates: start: 201712, end: 201801
  13. GLUCOSE 70% [Suspect]
     Active Substance: DEXTROSE
     Indication: DISEASE RECURRENCE
  14. POTASSIUM DI-H PHOSPHATE 1MMOL/ML [Suspect]
     Active Substance: POTASSIUM PHOSPHATE, MONOBASIC
     Indication: HYPOPHAGIA
     Dosage: TPN WITHOUT LIPID, VOLUME OF TPN 2400 ML/DAY VIA PORT-A-CATH
     Route: 042
     Dates: start: 201712, end: 201801
  15. POTASSIUM ACETATE 5MMOL/ML [Suspect]
     Active Substance: POTASSIUM ACETATE
     Indication: DISEASE RECURRENCE
  16. MAGNESIUM SULFATE 2MMOL/ML [Suspect]
     Active Substance: MAGNESIUM SULFATE
     Indication: HYPOPHAGIA
     Dosage: TPN WITHOUT LIPID, VOLUME OF TPN 2400 ML/DAY VIA PORT-A-CATH
     Route: 042
     Dates: start: 201712, end: 201801
  17. ADULT TRACE ELEMENTS [Suspect]
     Active Substance: MINERALS
     Indication: HYPOPHAGIA
     Dosage: TPN WITHOUT LIPID, VOLUME OF TPN 2400 ML/DAY VIA PORT-A-CATH
     Route: 042
     Dates: start: 201712, end: 201801
  18. ADULT TRACE ELEMENTS [Suspect]
     Active Substance: MINERALS
     Indication: DISEASE RECURRENCE
  19. SMOFLIPID [Suspect]
     Active Substance: FISH OIL\MEDIUM-CHAIN TRIGLYCERIDES\OLIVE OIL\SOYBEAN OIL
     Indication: HYPOPHAGIA
  20. SYNTHAMIN [Suspect]
     Active Substance: AMINO ACIDS
     Indication: SMALL INTESTINAL OBSTRUCTION
     Dosage: TPN WITH LIPID, VOLUME OF TPN 2400 ML/DAY VIA PORT-A-CATH
     Route: 042
     Dates: start: 201712, end: 201801
  21. CERNEVIT [Suspect]
     Active Substance: VITAMINS
     Indication: DISEASE RECURRENCE
  22. WATER FOR INJECTION [Suspect]
     Active Substance: WATER
     Indication: DISEASE RECURRENCE
  23. POTASSIUM ACETATE 5MMOL/ML [Suspect]
     Active Substance: POTASSIUM ACETATE
     Indication: SMALL INTESTINAL OBSTRUCTION
     Dosage: TPN WITH LIPID, VOLUME OF TPN 2400 ML/DAY VIA PORT-A-CATH
     Route: 042
     Dates: start: 201712, end: 201801
  24. CALCIUM GLUCONATE 0.15MMOL/ML [Suspect]
     Active Substance: CALCIUM GLUCONATE
     Indication: HYPOPHAGIA
     Dosage: TPN WITHOUT LIPID, VOLUME OF TPN 2400 ML/DAY VIA PORT-A-CATH
     Route: 042
     Dates: start: 201712, end: 201801
  25. CALCIUM GLUCONATE 0.15MMOL/ML [Suspect]
     Active Substance: CALCIUM GLUCONATE
     Indication: DISEASE RECURRENCE
  26. SYNTHAMIN [Suspect]
     Active Substance: AMINO ACIDS
     Indication: DISEASE RECURRENCE
  27. POTASSIUM DI-H PHOSPHATE 1MMOL/ML [Suspect]
     Active Substance: POTASSIUM PHOSPHATE, MONOBASIC
     Indication: SMALL INTESTINAL OBSTRUCTION
     Dosage: TPN WITH LIPID, VOLUME OF TPN 2400 ML/DAY VIA PORT-A-CATH
     Route: 042
     Dates: start: 201712, end: 201801
  28. POTASSIUM DI-H PHOSPHATE 1MMOL/ML [Suspect]
     Active Substance: POTASSIUM PHOSPHATE, MONOBASIC
     Indication: DISEASE RECURRENCE
  29. MAGNESIUM SULFATE 2MMOL/ML [Suspect]
     Active Substance: MAGNESIUM SULFATE
     Indication: SMALL INTESTINAL OBSTRUCTION
     Dosage: TPN WITH LIPID, VOLUME OF TPN 2400 ML/DAY VIA PORT-A-CATH
     Route: 042
     Dates: start: 201712, end: 201801
  30. WATER FOR INJECTION [Suspect]
     Active Substance: WATER
     Indication: SMALL INTESTINAL OBSTRUCTION
     Dosage: TPN WITH LIPID, VOLUME OF TPN 2400 ML/DAY VIA PORT-A-CATH
     Route: 042
     Dates: start: 201712, end: 201801
  31. POTASSIUM ACETATE 5MMOL/ML [Suspect]
     Active Substance: POTASSIUM ACETATE
     Indication: HYPOPHAGIA
     Dosage: TPN WITHOUT LIPID, VOLUME OF TPN 2400 ML/DAY VIA PORT-A-CATH
     Route: 042
     Dates: start: 201712, end: 201801
  32. SODIUM CHLORIDE 4MMOL/ML [Suspect]
     Active Substance: SODIUM CHLORIDE
     Indication: HYPOPHAGIA
     Dosage: TPN WITHOUT LIPID, VOLUME OF TPN 2400 ML/DAY VIA PORT-A-CATH
     Route: 042
     Dates: start: 201712, end: 201801
  33. MAGNESIUM SULFATE 2MMOL/ML [Suspect]
     Active Substance: MAGNESIUM SULFATE
     Indication: DISEASE RECURRENCE
  34. ADULT TRACE ELEMENTS [Suspect]
     Active Substance: MINERALS
     Indication: SMALL INTESTINAL OBSTRUCTION
     Dosage: TPN WITH LIPID, VOLUME OF TPN 2400 ML/DAY VIA PORT-A-CATH
     Route: 042
     Dates: start: 201712, end: 201801
  35. WATER FOR RECONSTITUTION [Suspect]
     Active Substance: WATER
     Indication: DISEASE RECURRENCE
  36. SMOFLIPID [Suspect]
     Active Substance: FISH OIL\MEDIUM-CHAIN TRIGLYCERIDES\OLIVE OIL\SOYBEAN OIL
     Indication: DISEASE RECURRENCE

REACTIONS (2)
  - Drug dispensing error [Recovered/Resolved]
  - Weight decreased [Unknown]

NARRATIVE: CASE EVENT DATE: 201712
